FAERS Safety Report 11132672 (Version 1)
Quarter: 2015Q2

REPORT INFORMATION
  Report Type: Report from Study
  Country: GR (occurrence: GR)
  Receive Date: 20150522
  Receipt Date: 20150522
  Transmission Date: 20150821
  Serious: Yes (Other)
  Sender: FDA-Public Use
  Company Number: PHHY2015GR057626

PATIENT
  Age: 14 Year
  Sex: Male

DRUGS (2)
  1. ILARIS [Suspect]
     Active Substance: CANAKINUMAB
     Indication: JUVENILE IDIOPATHIC ARTHRITIS
     Dosage: UNK
     Route: 065
     Dates: start: 2011
  2. LEDERLON [Concomitant]
     Active Substance: TRIAMCINOLONE HEXACETONIDE
     Indication: ARTHRITIS
     Dosage: UNK
     Route: 065
     Dates: start: 2011

REACTIONS (3)
  - Leukopenia [Unknown]
  - Petechiae [Unknown]
  - Thrombocytopenia [Unknown]

NARRATIVE: CASE EVENT DATE: 201409
